FAERS Safety Report 8405184-6 (Version None)
Quarter: 2012Q2

REPORT INFORMATION
  Report Type: 
  Country: None (occurrence: None)
  Receive Date: 20120603
  Receipt Date: 20120510
  Transmission Date: 20120825
  Serious: No
  Sender: FDA-Public Use
  Company Number: US-BAYER-2012-049365

PATIENT
  Age: 83 Year
  Sex: Male
  Weight: 98 kg

DRUGS (3)
  1. NAPROXEN (ALEVE) [Suspect]
     Indication: BACK PAIN
     Dosage: 1 TABLET TWICE DAILY - 40 COUNT
     Route: 048
     Dates: start: 20110101
  2. ASPIRIN [Concomitant]
     Indication: BACK PAIN
     Dosage: 2 TABLETS USED ONLY ONE TIME
     Route: 048
     Dates: start: 20120509, end: 20120509
  3. NAPROXEN (ALEVE) [Suspect]
     Dosage: 1 TABLET AS NEEDED
     Route: 048
     Dates: start: 20110101

REACTIONS (1)
  - DIZZINESS [None]
